FAERS Safety Report 7282990-5 (Version None)
Quarter: 2011Q1

REPORT INFORMATION
  Report Type: 
  Country: None (occurrence: None)
  Receive Date: 20110125
  Receipt Date: 20110113
  Transmission Date: 20110831
  Serious: Yes (Life-Threatening, Hospitalization, Other)
  Sender: FDA-Public Use
  Company Number: 008451

PATIENT
  Sex: Male
  Weight: 75.7507 kg

DRUGS (17)
  1. ROTIGOTINE [Suspect]
     Indication: PARKINSON'S DISEASE
     Dosage: 6 MG QD, TRANSDERMAL; 4 MG QD, TRANSDERMAL; 2 MG QD, TRANSDERMAL
     Route: 062
     Dates: start: 20100307, end: 20100308
  2. ROTIGOTINE [Suspect]
     Indication: PARKINSON'S DISEASE
     Dosage: 6 MG QD, TRANSDERMAL; 4 MG QD, TRANSDERMAL; 2 MG QD, TRANSDERMAL
     Route: 062
     Dates: start: 20090606, end: 20100304
  3. ROTIGOTINE [Suspect]
     Indication: PARKINSON'S DISEASE
     Dosage: 6 MG QD, TRANSDERMAL; 4 MG QD, TRANSDERMAL; 2 MG QD, TRANSDERMAL
     Route: 062
     Dates: start: 20100305, end: 20100306
  4. VITAMIN D [Concomitant]
  5. ALLERGY RELIEF [Concomitant]
  6. VICODIN [Concomitant]
  7. AVODART [Concomitant]
  8. LIPITOR [Concomitant]
  9. ROTIGOTINE [Concomitant]
  10. DEXAMETHASONE W/TOBRAMYCIN [Concomitant]
  11. ZOLOFT [Concomitant]
  12. VITAMIN B [Concomitant]
  13. ACCUPRIL [Concomitant]
  14. SINEMET [Concomitant]
  15. VITAMIN E [Concomitant]
  16. BENEFIBER [Concomitant]
  17. CALCIUM [Concomitant]

REACTIONS (7)
  - MITRAL VALVE PROLAPSE [None]
  - SINUS ARRHYTHMIA [None]
  - BRADYCARDIA [None]
  - AUTONOMIC NERVOUS SYSTEM IMBALANCE [None]
  - MITRAL VALVE INCOMPETENCE [None]
  - VENTRICULAR TACHYCARDIA [None]
  - DILATATION VENTRICULAR [None]
